FAERS Safety Report 24571467 (Version 1)
Quarter: 2024Q4

REPORT INFORMATION
  Report Type: Report from Study
  Country: CA (occurrence: CA)
  Receive Date: 20241101
  Receipt Date: 20241101
  Transmission Date: 20250115
  Serious: Yes (Other)
  Sender: JOHNSON AND JOHNSON
  Company Number: CA-JNJFOC-20241078013

PATIENT
  Age: 69 Year
  Sex: Female

DRUGS (1)
  1. SIMPONI [Suspect]
     Active Substance: GOLIMUMAB
     Indication: Rheumatoid arthritis
     Route: 058

REACTIONS (6)
  - Squamous cell carcinoma [Unknown]
  - Alopecia [Unknown]
  - Diarrhoea [Unknown]
  - Cough [Unknown]
  - Brain fog [Unknown]
  - Dry skin [Unknown]
